FAERS Safety Report 6199019-2 (Version None)
Quarter: 2009Q2

REPORT INFORMATION
  Report Type: 
  Country: None (occurrence: None)
  Receive Date: 20090519
  Receipt Date: 20090519
  Transmission Date: 20091009
  Serious: Yes (Other)
  Sender: FDA-Public Use
  Company Number: None

PATIENT
  Age: 80 Year
  Sex: Male

DRUGS (1)
  1. BSS [Suspect]

REACTIONS (2)
  - PRODUCT CONTAINER ISSUE [None]
  - PRODUCT CONTAMINATION MICROBIAL [None]
